FAERS Safety Report 25733372 (Version 1)
Quarter: 2025Q3

REPORT INFORMATION
  Report Type: Spontaneous
  Country: BR (occurrence: BR)
  Receive Date: 20250828
  Receipt Date: 20250828
  Transmission Date: 20251021
  Serious: Yes (Other)
  Sender: ROCHE
  Company Number: BR-ROCHE-10000366051

PATIENT
  Age: 76 Year
  Sex: Female
  Weight: 84 kg

DRUGS (1)
  1. ACTEMRA [Suspect]
     Active Substance: TOCILIZUMAB
     Indication: Rheumatoid arthritis
     Dosage: 4 PRE-FILLED SYRINGES WITH 0.9ML
     Route: 065
     Dates: start: 2022

REACTIONS (2)
  - Hip arthroplasty [Unknown]
  - Pain in extremity [Unknown]

NARRATIVE: CASE EVENT DATE: 20250607
